FAERS Safety Report 5368629-4 (Version None)
Quarter: 2007Q2

REPORT INFORMATION
  Report Type: 
  Country: None (occurrence: None)
  Receive Date: 20070620
  Receipt Date: 20070605
  Transmission Date: 20071010
  Serious: Yes (Hospitalization)
  Sender: FDA-Public Use
  Company Number: DSU-2007-00032

PATIENT
  Age: 73 Year
  Sex: Female
  Weight: 71.6683 kg

DRUGS (10)
  1. BENICAR HCT [Suspect]
     Indication: HYPERTENSION
     Dosage: UNKNOWN, PER ORAL
     Route: 048
     Dates: start: 20060702, end: 20061210
  2. PRILOSEC [Concomitant]
  3. VITAMIN E [Concomitant]
  4. GLUCOSAMINE SULFATE W/CHONDROITIN (CHONDROITIN SULFATE, GLUCOSAMINE SU [Concomitant]
  5. GRAPE SEED EXTRACT (VITIS VINIFERA EXTRACT) (VITIS VINIFERA EXTRACT) [Concomitant]
  6. TYLENOL PM (DIPHENHYDRAMINE, PARACETAMOL) (DIPHENHYDRAMINE, PARACETAMO [Concomitant]
  7. CALMAG (MAGNESIUM, CALCIUM, VITAMIN D NOS) (MAGNESIUM, CALCIUM, VITAMI [Concomitant]
  8. TRAMADOL HCL [Concomitant]
  9. STRESS B COMPLEX (VITAMINS NOS) (VITAMINS NOS) [Concomitant]
  10. CELEBREX [Concomitant]

REACTIONS (6)
  - COMPRESSION FRACTURE [None]
  - FALL [None]
  - HYPOKALAEMIA [None]
  - HYPONATRAEMIA [None]
  - LUMBAR VERTEBRAL FRACTURE [None]
  - SPINAL COLUMN STENOSIS [None]
